FAERS Safety Report 6945936-2 (Version None)
Quarter: 2010Q3

REPORT INFORMATION
  Report Type: 
  Country: None (occurrence: None)
  Receive Date: 20100827
  Receipt Date: 20100818
  Transmission Date: 20110219
  Serious: Yes (Other)
  Sender: FDA-Public Use
  Company Number: US-CEPHALON-2010004421

PATIENT
  Age: 35 Year
  Sex: Male

DRUGS (1)
  1. NUVIGIL [Suspect]
     Indication: ATTENTION DEFICIT/HYPERACTIVITY DISORDER
     Route: 048
     Dates: start: 20100501, end: 20100501

REACTIONS (2)
  - DRUG ABUSE [None]
  - PSYCHOTIC DISORDER [None]
